FAERS Safety Report 16982330 (Version 4)
Quarter: 2020Q3

REPORT INFORMATION
  Report Type: Other
  Country: GB (occurrence: GB)
  Receive Date: 20191101
  Receipt Date: 20200827
  Transmission Date: 20201102
  Serious: Yes (Hospitalization, Other)
  Sender: FDA-Public Use
  Company Number: GB-ROCHE-2451808

PATIENT
  Sex: Female

DRUGS (4)
  1. ETODOLAC. [Concomitant]
     Active Substance: ETODOLAC
  2. ROACTEMRA [Suspect]
     Active Substance: TOCILIZUMAB
     Indication: RHEUMATOID ARTHRITIS
     Dosage: ON 02/OCT/2019, TOOK THE LAST DOSE OF TOCILIZUMAB INJECTION.
     Route: 058
     Dates: start: 2019
  3. LEFLUNOMIDE. [Concomitant]
     Active Substance: LEFLUNOMIDE
  4. CO?DYDRAMOL [Concomitant]
     Active Substance: ACETAMINOPHEN\DIHYDROCODEINE

REACTIONS (13)
  - Dysgeusia [Unknown]
  - Oral infection [Unknown]
  - Fall [Unknown]
  - Joint dislocation [Unknown]
  - Tongue neoplasm [Unknown]
  - Immunosuppression [Unknown]
  - Condition aggravated [Unknown]
  - Pneumonia [Unknown]
  - Cough [Unknown]
  - Lower respiratory tract infection [Unknown]
  - Rheumatoid arthritis [Unknown]
  - Bedridden [Unknown]
  - Fungal infection [Unknown]
